FAERS Safety Report 6891159-5 (Version None)
Quarter: 2010Q3

REPORT INFORMATION
  Report Type: 
  Country: None (occurrence: None)
  Receive Date: 20100731
  Receipt Date: 20090616
  Transmission Date: 20110219
  Serious: No
  Sender: FDA-Public Use
  Company Number: US-PFIZER INC-2009203447

PATIENT
  Sex: Male
  Weight: 93 kg

DRUGS (9)
  1. LIPITOR [Suspect]
     Indication: BLOOD CHOLESTEROL INCREASED
     Dosage: 10 MG, 1X/DAY
     Route: 048
     Dates: end: 20090101
  2. LASIX [Concomitant]
     Dosage: UNK
  3. COREG [Concomitant]
     Dosage: UNK
  4. ACETYLSALICYLIC ACID [Concomitant]
     Dosage: UNK
  5. HYDROCODONE [Concomitant]
     Indication: BACK PAIN
     Dosage: UNK
  6. VENLAFAXINE [Concomitant]
     Indication: DEPRESSION
     Dosage: UNK
  7. POTASSIUM [Concomitant]
     Dosage: UNK
  8. LORAZEPAM [Concomitant]
     Dosage: UNK
  9. MORPHINE [Concomitant]
     Indication: BACK PAIN

REACTIONS (2)
  - GAIT DISTURBANCE [None]
  - MYALGIA [None]
